FAERS Safety Report 20517762 (Version 1)
Quarter: 2022Q1

REPORT INFORMATION
  Report Type: Spontaneous
  Country: US (occurrence: None)
  Receive Date: 20220224
  Receipt Date: 20220224
  Transmission Date: 20220423
  Serious: Yes (Death)
  Sender: FDA-Public Use
  Company Number: None

PATIENT
  Age: 75 Year
  Sex: Male

DRUGS (1)
  1. BARICITINIB [Suspect]
     Active Substance: BARICITINIB
     Indication: COVID-19
     Dosage: FREQUENCY : DAILY;?
     Route: 048
     Dates: start: 20211230, end: 20220108

REACTIONS (6)
  - Fibrin D dimer increased [None]
  - C-reactive protein increased [None]
  - General physical health deterioration [None]
  - Myocardial infarction [None]
  - Thrombocytopenia [None]
  - Pulmonary embolism [None]

NARRATIVE: CASE EVENT DATE: 20220109
